FAERS Safety Report 6062267-6 (Version None)
Quarter: 2009Q1

REPORT INFORMATION
  Report Type: 
  Country: None (occurrence: None)
  Receive Date: 20090203
  Receipt Date: 20090127
  Transmission Date: 20090719
  Serious: Yes (Death)
  Sender: FDA-Public Use
  Company Number: US-CELGENEUS-163-21880-08121855

PATIENT
  Sex: Male

DRUGS (3)
  1. REVLIMID [Suspect]
     Route: 048
     Dates: start: 20081118, end: 20081215
  2. REVLIMID [Suspect]
     Route: 048
     Dates: start: 20070718, end: 20080201
  3. REVLIMID [Suspect]
     Route: 048
     Dates: start: 20080221, end: 20080201

REACTIONS (1)
  - SUDDEN DEATH [None]
